FAERS Safety Report 4804538-4 (Version None)
Quarter: 2005Q4

REPORT INFORMATION
  Report Type: 
  Country: None (occurrence: None)
  Receive Date: 20051017
  Receipt Date: 20051010
  Transmission Date: 20060501
  Serious: Yes (Life-Threatening, Hospitalization, Other)
  Sender: FDA-Public Use
  Company Number: HQWYE948110OCT05

PATIENT
  Age: 34 Year
  Sex: Male

DRUGS (4)
  1. EFFEXOR [Suspect]
     Dosage: SEE IMAGE
  2. . [Concomitant]
  3. LIPITOR [Concomitant]
  4. LOSEC (OMEPRAZOLE) [Concomitant]

REACTIONS (4)
  - CONVULSION [None]
  - ENCEPHALOPATHY [None]
  - HEADACHE [None]
  - HYPERTENSION [None]
